FAERS Safety Report 8984035 (Version 2)
Quarter: 2014Q4

REPORT INFORMATION
  Report Type: Spontaneous
  Country: AR (occurrence: None)
  Receive Date: 20121214
  Receipt Date: 20141216
  Transmission Date: 20150529
  Serious: Yes (Hospitalization)
  Sender: FDA-Public Use
  Company Number: 138833

PATIENT
  Age: 70 Year
  Sex: Male
  Weight: 68 kg

DRUGS (8)
  1. IRINOTECAN [Suspect]
     Active Substance: IRINOTECAN
     Indication: COLORECTAL CANCER METASTATIC
     Dosage: 1 IN 14 D, IV (NOT OTHERWISE SPECIFIED)
     Route: 042
     Dates: start: 20120404, end: 20120614
  2. METHADONE [Concomitant]
     Active Substance: METHADONE HYDROCHLORIDE
  3. TRIMEBUTINE (TRIMEBUTINE) [Concomitant]
  4. LEUCOVORIN CALCIUM. [Suspect]
     Active Substance: LEUCOVORIN CALCIUM
     Indication: COLORECTAL CANCER METASTATIC
     Dosage: 1 IN 14 D, IV (NOT OTHERWISE SPECIFIED)
     Route: 042
     Dates: start: 20120404
  5. BLINDED STUDY DRUG [Suspect]
     Active Substance: INVESTIGATIONAL PRODUCT
     Indication: COLORECTAL CANCER METASTATIC
     Dosage: 1 IN 14 D
     Dates: start: 20120404, end: 20120614
  6. 5-FLUOROURACIL [Suspect]
     Active Substance: FLUOROURACIL
     Indication: COLORECTAL CANCER METASTATIC
     Dosage: 1 IN 14D
     Route: 042
     Dates: start: 20120404, end: 20120802
  7. PREGABALIN (PREGABALIN) [Concomitant]
     Active Substance: PREGABALIN
  8. COLESTYRAMINE (COLESTYRAMINE) [Concomitant]

REACTIONS (4)
  - Gastrointestinal toxicity [None]
  - Sepsis [None]
  - Escherichia test positive [None]
  - Bacteraemia [None]

NARRATIVE: CASE EVENT DATE: 20120823
